FAERS Safety Report 22069159 (Version 2)
Quarter: 2023Q1

REPORT INFORMATION
  Report Type: Spontaneous
  Country: US (occurrence: US)
  Receive Date: 20230307
  Receipt Date: 20230315
  Transmission Date: 20230418
  Serious: Yes (Other)
  Sender: FDA-Public Use
  Company Number: US-MYLANLABS-2023M1023623

PATIENT
  Age: 65 Year
  Sex: Male

DRUGS (5)
  1. SILDENAFIL [Suspect]
     Active Substance: SILDENAFIL
     Indication: Erectile dysfunction
     Dosage: 50 MILLIGRAM
     Route: 065
  2. SILDENAFIL [Suspect]
     Active Substance: SILDENAFIL
     Dosage: PAINFUL SWELLING PROGRESSED 1 HOUR AFTER TAKING SILDENAFIL
     Route: 065
  3. SILDENAFIL [Suspect]
     Active Substance: SILDENAFIL
     Dosage: 100 MILLIGRAM (DOSE INCREASED TO 100MG SEVERAL DAYS LATER AND DISCONTINUED FURTHER
     Route: 065
  4. TADALAFIL [Suspect]
     Active Substance: TADALAFIL
     Indication: Erectile dysfunction
     Dosage: UNK
     Route: 065
  5. TADALAFIL [Suspect]
     Active Substance: TADALAFIL
     Dosage: EXPERIENCED SWELLING, INTERMITTENT PAIN IN POST-OPERATIVE KNEE, TWICE WITH TADALAFIL
     Route: 065

REACTIONS (2)
  - Joint effusion [Recovered/Resolved]
  - Drug ineffective [Recovered/Resolved]
